FAERS Safety Report 6779936-2 (Version None)
Quarter: 2010Q2

REPORT INFORMATION
  Report Type: 
  Country: None (occurrence: None)
  Receive Date: 20100618
  Receipt Date: 20100608
  Transmission Date: 20101027
  Serious: Yes (Hospitalization, Other)
  Sender: FDA-Public Use
  Company Number: PL-PFIZER INC-2005066852

PATIENT
  Age: 50 Year
  Sex: Female
  Weight: 55 kg

DRUGS (3)
  1. XALATAN [Suspect]
     Indication: GLAUCOMA
     Dosage: DAILY
     Route: 065
     Dates: start: 20050427, end: 20050428
  2. TRUSOPT [Concomitant]
     Route: 047
  3. OFTENSIN [Concomitant]
     Route: 047

REACTIONS (3)
  - BLOOD PRESSURE INCREASED [None]
  - SYNCOPE [None]
  - TACHYCARDIA [None]
